FAERS Safety Report 11518057 (Version 2)
Quarter: 2015Q4

REPORT INFORMATION
  Report Type: Spontaneous
  Country: US (occurrence: US)
  Receive Date: 20150917
  Receipt Date: 20151216
  Transmission Date: 20160304
  Serious: No
  Sender: FDA-Public Use
  Company Number: US-GALDERMA-US15006401

PATIENT
  Age: 43 Year
  Sex: Female

DRUGS (3)
  1. MIRVASO [Suspect]
     Active Substance: BRIMONIDINE TARTRATE
     Indication: ROSACEA
     Dosage: 0.33%
     Route: 061
     Dates: start: 20150720, end: 20150725
  2. FINACEA [Suspect]
     Active Substance: AZELAIC ACID
     Indication: ROSACEA
     Dosage: 15%
     Route: 061
     Dates: start: 20150720, end: 20150725
  3. ORACEA [Suspect]
     Active Substance: DOXYCYCLINE
     Indication: ROSACEA
     Dosage: 40 MG
     Route: 048
     Dates: start: 20150720, end: 20150725

REACTIONS (2)
  - Skin burning sensation [Recovered/Resolved]
  - Pain of skin [Recovered/Resolved]

NARRATIVE: CASE EVENT DATE: 20150723
